FAERS Safety Report 8506940-6 (Version None)
Quarter: 2012Q3

REPORT INFORMATION
  Report Type: 
  Country: None (occurrence: None)
  Receive Date: 20120712
  Receipt Date: 20120709
  Transmission Date: 20120928
  Serious: Yes (Other)
  Sender: FDA-Public Use
  Company Number: US-PFIZER INC-2012164358

PATIENT
  Sex: Female
  Weight: 83.9 kg

DRUGS (8)
  1. MOBIC [Concomitant]
     Indication: MULTIPLE SCLEROSIS
     Dosage: UNK
  2. NEURONTIN [Concomitant]
     Dosage: UNK
  3. DILAUDID [Concomitant]
     Dosage: UNK
  4. LEXAPRO [Concomitant]
     Dosage: UNK
  5. LYRICA [Suspect]
     Indication: NEURALGIA
     Dosage: 50 MG, 3X/DAY
     Route: 048
     Dates: start: 20120201, end: 20120101
  6. FUROSEMIDE [Concomitant]
     Indication: HYPERTENSION
     Dosage: UNK
  7. FLEXERIL [Concomitant]
     Dosage: UNK
  8. LISINOPRIL [Concomitant]
     Indication: HYPERTENSION
     Dosage: UNK

REACTIONS (1)
  - FLUID RETENTION [None]
